FAERS Safety Report 7961887-9 (Version None)
Quarter: 2011Q4

REPORT INFORMATION
  Report Type: 
  Country: None (occurrence: None)
  Receive Date: 20111202
  Receipt Date: 20111202
  Transmission Date: 20120403
  Serious: No
  Sender: FDA-Public Use
  Company Number: None

PATIENT
  Age: 73 Year
  Sex: Female
  Weight: 104.3273 kg

DRUGS (1)
  1. ZETIA [Suspect]
     Indication: BLOOD CHOLESTEROL INCREASED
     Dosage: 10MG ONE @ BEDTIME ORAL  MONTH OF OCT
     Route: 048

REACTIONS (4)
  - MUSCLE SPASMS [None]
  - SINUS DISORDER [None]
  - HEADACHE [None]
  - DIARRHOEA [None]
